FAERS Safety Report 14014787 (Version 2)
Quarter: 2018Q3

REPORT INFORMATION
  Report Type: Spontaneous
  Country: US (occurrence: US)
  Receive Date: 20170927
  Receipt Date: 20180725
  Transmission Date: 20181010
  Serious: No
  Sender: FDA-Public Use
  Company Number: US-PFIZER INC-2017416641

PATIENT
  Age: 60 Year
  Sex: Male
  Weight: 93 kg

DRUGS (2)
  1. VIAGRA [Suspect]
     Active Substance: SILDENAFIL CITRATE
     Indication: ERECTILE DYSFUNCTION
     Dosage: 100 MG, WEEKLY
     Route: 048
  2. NAPROXEN. [Concomitant]
     Active Substance: NAPROXEN
     Dosage: 220 MG

REACTIONS (1)
  - Drug ineffective [Recovered/Resolved]
